FAERS Safety Report 5064473-6 (Version None)
Quarter: 2006Q3

REPORT INFORMATION
  Report Type: 
  Country: None (occurrence: None)
  Receive Date: 20060728
  Receipt Date: 20060720
  Transmission Date: 20061208
  Serious: Yes (Hospitalization)
  Sender: FDA-Public Use
  Company Number: GBWYE296520JUL06

PATIENT
  Sex: Male
  Weight: 44 kg

DRUGS (4)
  1. ENBREL [Suspect]
     Indication: JUVENILE ARTHRITIS
     Route: 058
     Dates: start: 20031108, end: 20060426
  2. FUROSEMIDE [Concomitant]
     Dates: start: 20051201
  3. IBUPROFEN [Concomitant]
  4. SPIRONOLACTONE [Concomitant]
     Dates: start: 20051201

REACTIONS (2)
  - HYPOPYON [None]
  - UVEITIS [None]
